FAERS Safety Report 9711781 (Version 1)
Quarter: 2013Q4

REPORT INFORMATION
  Report Type: Spontaneous
  Country: US (occurrence: US)
  Receive Date: 20131126
  Receipt Date: 20131126
  Transmission Date: 20140711
  Serious: Yes (Other)
  Sender: FDA-Public Use
  Company Number: US-BRISTOL-MYERS SQUIBB COMPANY-18817841

PATIENT
  Age: 56 Year
  Sex: Female
  Weight: 163.26 kg

DRUGS (12)
  1. BYDUREON [Suspect]
     Indication: TYPE 2 DIABETES MELLITUS
     Dosage: 2ND INJ ON 17APR13
     Route: 058
     Dates: start: 20130410
  2. ALPHA-1 PROTEINASE INHIBITOR (HUMAN) [Concomitant]
     Dosage: HUMULIN N 70/30
  3. HUMULIN R [Concomitant]
  4. OXYCODONE [Concomitant]
  5. SPIRONOLACTONE [Concomitant]
  6. LOSARTAN [Concomitant]
     Indication: RENAL DISORDER
     Route: 048
  7. GABAPENTIN [Concomitant]
     Dosage: 1DF:600-800 QC
  8. SINGULAIR [Concomitant]
  9. ADVAIR [Concomitant]
  10. KRILL OIL [Concomitant]
  11. VITAMIN D [Concomitant]
     Indication: VITAMIN SUPPLEMENTATION
  12. HUMULIN N [Concomitant]

REACTIONS (2)
  - Hypersensitivity [Recovered/Resolved]
  - Back pain [Recovered/Resolved]
